FAERS Safety Report 5325769-3 (Version None)
Quarter: 2007Q2

REPORT INFORMATION
  Report Type: 
  Country: None (occurrence: None)
  Receive Date: 20070509
  Receipt Date: 20070425
  Transmission Date: 20071010
  Serious: Yes (Other)
  Sender: FDA-Public Use
  Company Number: 2007US000973

PATIENT
  Age: 61 Year
  Sex: Female

DRUGS (1)
  1. PROGRAF [Suspect]
     Indication: LIVER TRANSPLANT
     Dosage: ORAL
     Route: 048

REACTIONS (8)
  - ABDOMINAL DISTENSION [None]
  - CEREBROVASCULAR ACCIDENT [None]
  - DIARRHOEA [None]
  - ECONOMIC PROBLEM [None]
  - HEPATIC CIRRHOSIS [None]
  - LIVER TRANSPLANT REJECTION [None]
  - PAIN [None]
  - TREATMENT NONCOMPLIANCE [None]
